FAERS Safety Report 4990444-1 (Version None)
Quarter: 2006Q1

REPORT INFORMATION
  Report Type: 
  Country: None (occurrence: None)
  Receive Date: 20060315
  Receipt Date: 20050211
  Transmission Date: 20060701
  Serious: Yes (Hospitalization)
  Sender: FDA-Public Use
  Company Number: USA050290598

PATIENT
  Age: 76 Year
  Sex: Male

DRUGS (2)
  1. GEMZAR [Suspect]
     Indication: BLADDER CANCER
     Dosage: INTRAVENOUS
     Route: 042
     Dates: start: 20041223
  2. CISPLATIN [Concomitant]

REACTIONS (2)
  - CELLULITIS [None]
  - PHLEBITIS [None]
